FAERS Safety Report 11250641 (Version 1)
Quarter: 2015Q3

REPORT INFORMATION
  Report Type: Spontaneous
  Country: US (occurrence: US)
  Receive Date: 20150708
  Receipt Date: 20150708
  Transmission Date: 20151125
  Serious: No
  Sender: FDA-Public Use
  Company Number: US-ELI_LILLY_AND_COMPANY-US201102006025

PATIENT
  Age: 24 Year
  Sex: Female

DRUGS (2)
  1. SYMBYAX [Suspect]
     Active Substance: FLUOXETINE HYDROCHLORIDE\OLANZAPINE
     Indication: BIPOLAR DISORDER
     Dosage: 6/25MG, EACH EVENING
     Route: 065
     Dates: start: 20110215
  2. SYMBYAX [Suspect]
     Active Substance: FLUOXETINE HYDROCHLORIDE\OLANZAPINE
     Dosage: 3/25MG, UNKNOWN
     Route: 065

REACTIONS (4)
  - Dysphagia [Unknown]
  - Somnolence [Unknown]
  - Drug ineffective [Unknown]
  - Sleep disorder [Unknown]
